FAERS Safety Report 7237253-0 (Version None)
Quarter: 2011Q1

REPORT INFORMATION
  Report Type: 
  Country: None (occurrence: None)
  Receive Date: 20110121
  Receipt Date: 20110107
  Transmission Date: 20110831
  Serious: Yes (Death, Hospitalization)
  Sender: FDA-Public Use
  Company Number: CA-CELGENEUS-028-21880-10100522

PATIENT
  Sex: Female

DRUGS (13)
  1. REVLIMID [Suspect]
     Route: 048
  2. REVLIMID [Suspect]
     Route: 048
     Dates: start: 20080501, end: 20100901
  3. PANTOLOC [Concomitant]
     Route: 065
  4. FOLIC ACID [Concomitant]
     Route: 065
  5. VALIUM [Concomitant]
     Route: 065
  6. IMODIUM [Concomitant]
     Route: 065
  7. PENTA 3B [Concomitant]
     Route: 065
  8. REVLIMID [Suspect]
     Route: 048
  9. WHOLE BLOOD [Concomitant]
     Dosage: 7 UNITS
     Route: 051
  10. REVLIMID [Suspect]
     Route: 048
  11. TYLENOL-500 [Concomitant]
     Route: 065
  12. AVALIDE [Concomitant]
     Route: 065
  13. SYNTHROID [Concomitant]
     Route: 065

REACTIONS (5)
  - NEUROPATHY PERIPHERAL [None]
  - SMALL INTESTINAL OBSTRUCTION [None]
  - MYOPATHY [None]
  - MYELODYSPLASTIC SYNDROME [None]
  - CHONDROCALCINOSIS PYROPHOSPHATE [None]
